FAERS Safety Report 10424765 (Version 1)
Quarter: 2014Q3

REPORT INFORMATION
  Report Type: Spontaneous
  Country: US (occurrence: US)
  Receive Date: 20140902
  Receipt Date: 20140902
  Transmission Date: 20150326
  Serious: Yes (Hospitalization, Disabling)
  Sender: FDA-Public Use
  Company Number: US-FRI-1000070304

PATIENT
  Age: 51 Year
  Sex: Male
  Weight: 90 kg

DRUGS (2)
  1. SAPHRIS [Suspect]
     Active Substance: ASENAPINE MALEATE
     Indication: BIPOLAR DISORDER
  2. SAPHRIS [Suspect]
     Active Substance: ASENAPINE MALEATE
     Indication: AMNESIA

REACTIONS (5)
  - Swollen tongue [Unknown]
  - Off label use [Unknown]
  - Hyperhidrosis [Unknown]
  - Malaise [Unknown]
  - Convulsion [Unknown]

NARRATIVE: CASE EVENT DATE: 20130801
